FAERS Safety Report 7010667-X (Version None)
Quarter: 2010Q3

REPORT INFORMATION
  Report Type: 
  Country: None (occurrence: None)
  Receive Date: 20100923
  Receipt Date: 20100913
  Transmission Date: 20110219
  Serious: Yes (Other)
  Sender: FDA-Public Use
  Company Number: US-PFIZER INC-2010115703

PATIENT
  Sex: Male
  Weight: 96.145 kg

DRUGS (1)
  1. CAVERJECT [Suspect]
     Indication: ERECTILE DYSFUNCTION
     Dosage: AS NEEDED
     Dates: start: 20050101, end: 20050101

REACTIONS (1)
  - MULTIPLE MYELOMA [None]
